FAERS Safety Report 24857058 (Version 1)
Quarter: 2025Q1

REPORT INFORMATION
  Report Type: Spontaneous
  Country: US (occurrence: US)
  Receive Date: 20250117
  Receipt Date: 20250117
  Transmission Date: 20250409
  Serious: No
  Sender: ELI LILLY AND COMPANY
  Company Number: US-ELI_LILLY_AND_COMPANY-US202501011761

PATIENT
  Age: 42 Year
  Sex: Male

DRUGS (1)
  1. REZVOGLAR KWIKPEN [Suspect]
     Active Substance: INSULIN GLARGINE-AGLR
     Indication: Type 2 diabetes mellitus
     Route: 058

REACTIONS (1)
  - Incorrect dose administered [Unknown]

NARRATIVE: CASE EVENT DATE: 20250116
